FAERS Safety Report 19084054 (Version 3)
Quarter: 2021Q2

REPORT INFORMATION
  Report Type: Spontaneous
  Country: US (occurrence: US)
  Receive Date: 20210401
  Receipt Date: 20210525
  Transmission Date: 20210717
  Serious: No
  Sender: FDA-Public Use
  Company Number: US-ASTRAZENECA-2021A177772

PATIENT
  Age: 17041 Day
  Sex: Female
  Weight: 74.8 kg

DRUGS (4)
  1. FASENRA [Suspect]
     Active Substance: BENRALIZUMAB
     Indication: ASTHMA
     Dosage: 30MG, EVERY FOUR WEEKS FOR THE FIRST THREE DOSES AND THEN EVERY EIGHT WEEKS
     Route: 058
     Dates: start: 20210315
  2. FASENRA [Suspect]
     Active Substance: BENRALIZUMAB
     Indication: ASTHMA
     Dosage: 30MG, EVERY FOUR WEEKS FOR THE FIRST THREE DOSES AND THEN EVERY EIGHT WEEKS
     Route: 058
     Dates: start: 201808
  3. FASENRA [Suspect]
     Active Substance: BENRALIZUMAB
     Indication: ASTHMA
     Dosage: 30MG, EVERY FOUR WEEKS FOR THE FIRST THREE DOSES AND THEN EVERY EIGHT WEEKS
     Route: 058
     Dates: start: 20210315
  4. FASENRA [Suspect]
     Active Substance: BENRALIZUMAB
     Indication: ASTHMA
     Route: 058
     Dates: start: 202101

REACTIONS (7)
  - Symptom recurrence [Unknown]
  - Device defective [Unknown]
  - Device issue [Unknown]
  - Oxygen saturation decreased [Unknown]
  - Product administration error [Unknown]
  - Device leakage [Unknown]
  - Respiration abnormal [Unknown]

NARRATIVE: CASE EVENT DATE: 20210315
